FAERS Safety Report 9449113 (Version 2)
Quarter: 2013Q3

REPORT INFORMATION
  Report Type: Report from Study
  Country: DE (occurrence: DE)
  Receive Date: 20130808
  Receipt Date: 20130823
  Transmission Date: 20140515
  Serious: Yes (Death, Other)
  Sender: FDA-Public Use
  Company Number: DE-ABBOTT-13P-062-1131140-00

PATIENT
  Age: 81 Year
  Sex: Male

DRUGS (2)
  1. TRENANTONE [Suspect]
     Indication: PROSTATE CANCER
     Dates: start: 20111202, end: 20130321
  2. ACE INHIBITOR/AT1 ANTAGONIST [Concomitant]
     Indication: PRODUCT USED FOR UNKNOWN INDICATION
     Route: 065

REACTIONS (2)
  - Cerebrovascular accident [Fatal]
  - Transient ischaemic attack [Unknown]
